FAERS Safety Report 7740952-5 (Version None)
Quarter: 2011Q3

REPORT INFORMATION
  Report Type: 
  Country: None (occurrence: None)
  Receive Date: 20110909
  Receipt Date: 20110905
  Transmission Date: 20111222
  Serious: Yes (Death)
  Sender: FDA-Public Use
  Company Number: PHHY2011IT79397

PATIENT
  Age: 53 Year
  Sex: Male

DRUGS (2)
  1. STEROIDS [Concomitant]
     Dosage: 25 MG, DAILY
  2. CYCLOSPORINE [Suspect]
     Indication: LUNG TRANSPLANT
     Dosage: 250 MG, DAILY

REACTIONS (5)
  - HILAR LYMPHADENOPATHY [None]
  - PRIMARY MEDIASTINAL LARGE B-CELL LYMPHOMA [None]
  - NON-HODGKIN'S LYMPHOMA [None]
  - LYMPHADENOPATHY MEDIASTINAL [None]
  - EPSTEIN-BARR VIRUS ASSOCIATED LYMPHOPROLIFERATIVE DISORDER [None]
